FAERS Safety Report 16948620 (Version 1)
Quarter: 2019Q4

REPORT INFORMATION
  Report Type: Spontaneous
  Country: US (occurrence: US)
  Receive Date: 20191023
  Receipt Date: 20191023
  Transmission Date: 20200122
  Serious: No
  Sender: FDA-Public Use
  Company Number: US-PURDUE-USA-2019-0148015

PATIENT
  Sex: Female

DRUGS (2)
  1. OXYCONTIN [Suspect]
     Active Substance: OXYCODONE HYDROCHLORIDE
     Indication: POLYNEUROPATHY
     Dosage: 40 MG, BID
     Route: 048
     Dates: start: 1999
  2. OXYCONTIN [Suspect]
     Active Substance: OXYCODONE HYDROCHLORIDE
     Indication: SMALL FIBRE NEUROPATHY
     Dosage: 40 MG, BID
     Route: 048
     Dates: start: 20190713

REACTIONS (4)
  - Drug ineffective [Not Recovered/Not Resolved]
  - Decreased activity [Not Recovered/Not Resolved]
  - Pain [Not Recovered/Not Resolved]
  - Gait disturbance [Not Recovered/Not Resolved]
